FAERS Safety Report 8448721-8 (Version None)
Quarter: 2012Q2

REPORT INFORMATION
  Report Type: 
  Country: None (occurrence: None)
  Receive Date: 20120619
  Receipt Date: 20120604
  Transmission Date: 20120825
  Serious: Yes (Life-Threatening, Hospitalization, Other)
  Sender: FDA-Public Use
  Company Number: PL-ROCHE-662754

PATIENT
  Age: 52 Year
  Sex: Female

DRUGS (4)
  1. RIBAVIRIN [Suspect]
     Dosage: DOSE REDUCED
  2. PEGINTERFERON ALFA-2B [Suspect]
     Indication: HEPATITIS C
     Route: 065
  3. RIBAVIRIN [Suspect]
     Indication: HEPATITIS C
     Route: 065
  4. METHIMAZOLE [Suspect]
     Indication: HYPERTHYROIDISM
     Route: 065

REACTIONS (3)
  - AGRANULOCYTOSIS [None]
  - HYPERTHYROIDISM [None]
  - DRUG INEFFECTIVE [None]
